FAERS Safety Report 20620803 (Version 3)
Quarter: 2024Q2

REPORT INFORMATION
  Report Type: Spontaneous
  Country: US (occurrence: US)
  Receive Date: 20220322
  Receipt Date: 20240403
  Transmission Date: 20240716
  Serious: Yes (Hospitalization, Other)
  Sender: FDA-Public Use
  Company Number: US-GLAXOSMITHKLINE-US2022GSK049657

PATIENT

DRUGS (1)
  1. LAMOTRIGINE [Suspect]
     Active Substance: LAMOTRIGINE
     Indication: Major depression
     Dosage: UNK
     Dates: start: 2020, end: 2020

REACTIONS (30)
  - Haemophagocytic lymphohistiocytosis [Recovered/Resolved]
  - Pancytopenia [Recovered/Resolved]
  - Hepatitis acute [Recovered/Resolved]
  - Chromaturia [Recovered/Resolved]
  - Relapsing fever [Recovered/Resolved]
  - Condition aggravated [Recovered/Resolved]
  - Leukopenia [Recovered/Resolved]
  - Thrombocytopenia [Recovered/Resolved]
  - Hyperbilirubinaemia [Recovered/Resolved]
  - Optic ischaemic neuropathy [Recovered/Resolved]
  - Haemolytic anaemia [Recovered/Resolved]
  - Hilar lymphadenopathy [Recovered/Resolved]
  - Lung opacity [Recovered/Resolved]
  - Splenomegaly [Recovered/Resolved]
  - Blood lactate dehydrogenase increased [Recovered/Resolved]
  - Marrow hyperplasia [Recovered/Resolved]
  - Myalgia [Recovered/Resolved]
  - Pyrexia [Recovered/Resolved]
  - Hepatic enzyme increased [Recovered/Resolved]
  - Urobilinogen urine increased [Recovered/Resolved]
  - Lymphadenopathy [Recovered/Resolved]
  - Lymphopenia [Recovered/Resolved]
  - Hypofibrinogenaemia [Recovered/Resolved]
  - Urine bilirubin increased [Recovered/Resolved]
  - Rash erythematous [Recovered/Resolved]
  - Pallor [Recovered/Resolved]
  - Serum ferritin increased [Recovered/Resolved]
  - Rash maculo-papular [Recovered/Resolved]
  - Blood triglycerides increased [Recovered/Resolved]
  - Inflammation [Recovered/Resolved]

NARRATIVE: CASE EVENT DATE: 20200101
